FAERS Safety Report 18657867 (Version 1)
Quarter: 2020Q4

REPORT INFORMATION
  Report Type: Spontaneous
  Country: CA (occurrence: CA)
  Receive Date: 20201223
  Receipt Date: 20201223
  Transmission Date: 20210114
  Serious: Yes (Death, Other)
  Sender: FDA-Public Use
  Company Number: CA-SA-2020SA367419

PATIENT

DRUGS (1)
  1. ENOXAPARIN SODIUM. [Suspect]
     Active Substance: ENOXAPARIN SODIUM
     Indication: DEEP VEIN THROMBOSIS
     Route: 065

REACTIONS (8)
  - Vomiting [Unknown]
  - Tachycardia [Unknown]
  - Abdominal pain [Unknown]
  - Metrorrhagia [Unknown]
  - Retroperitoneal haemorrhage [Fatal]
  - Tachypnoea [Unknown]
  - Sickle cell anaemia with crisis [Unknown]
  - Condition aggravated [Unknown]
